FAERS Safety Report 7632865-4 (Version None)
Quarter: 2011Q3

REPORT INFORMATION
  Report Type: 
  Country: None (occurrence: None)
  Receive Date: 20110701
  Receipt Date: 20110111
  Transmission Date: 20111222
  Serious: Yes (Hospitalization)
  Sender: FDA-Public Use
  Company Number: 7036090

PATIENT
  Age: 57 Year
  Sex: Female
  Weight: 54 kg

DRUGS (8)
  1. REBIF [Suspect]
     Indication: MULTIPLE SCLEROSIS
     Dosage: 44 MCG, 2 IN 1 WK, SUBCUTANEOUS
     Route: 058
     Dates: start: 20040229
  2. VICODIN [Concomitant]
  3. SLOMAX (ALL OTHER THERAPEUTIC PRODUCTS) [Concomitant]
  4. MORPHINE [Concomitant]
  5. NEXIUM [Concomitant]
  6. KLONOPIN [Concomitant]
  7. DILAUDID [Concomitant]
  8. NAPROXEN [Concomitant]

REACTIONS (5)
  - MULTIPLE SCLEROSIS RELAPSE [None]
  - ARTHRITIS [None]
  - TREMOR [None]
  - INJECTION SITE PAIN [None]
  - OSTEOPENIA [None]
